FAERS Safety Report 9066611 (Version 1)
Quarter: 2013Q1

REPORT INFORMATION
  Report Type: Report from Study
  Country: US (occurrence: US)
  Receive Date: 20130131
  Receipt Date: 20130131
  Transmission Date: 20140127
  Serious: No
  Sender: FDA-Public Use
  Company Number: US-ABBOTT-12P-163-1013220-00

PATIENT
  Sex: Male

DRUGS (1)
  1. HUMIRA [Suspect]
     Indication: RHEUMATOID ARTHRITIS
     Dates: end: 201211

REACTIONS (6)
  - Decreased appetite [Unknown]
  - Hepatic enzyme increased [Unknown]
  - Weight decreased [Unknown]
  - Hiatus hernia [Unknown]
  - Gallbladder pain [Unknown]
  - Nausea [Unknown]
